FAERS Safety Report 12458354 (Version 1)
Quarter: 2016Q2

REPORT INFORMATION
  Report Type: Spontaneous
  Country: DO (occurrence: DO)
  Receive Date: 20160613
  Receipt Date: 20160613
  Transmission Date: 20160815
  Serious: Yes (Other)
  Sender: FDA-Public Use
  Company Number: DO-ROCHE-1766040

PATIENT
  Age: 62 Year
  Sex: Female

DRUGS (2)
  1. XOLAIR [Suspect]
     Active Substance: OMALIZUMAB
     Indication: ASTHMA
     Dosage: MOST RECENT DOSE WAS RECEIVED ON 23/MAY/2016 (UNKNOWN DOSE)
     Route: 065
  2. NIFEDICOR [Concomitant]
     Active Substance: NIFEDIPINE
     Indication: BLOOD PRESSURE INCREASED
     Dosage: 1 DF, BID (1 IN THE MORNING AND 1 IN THE AFTERNOON)
     Route: 048

REACTIONS (3)
  - Asthma [Unknown]
  - Blood pressure abnormal [Unknown]
  - Cardiomegaly [Unknown]
